FAERS Safety Report 9375544 (Version 5)
Quarter: 2013Q4

REPORT INFORMATION
  Report Type: Report from Study
  Country: JP (occurrence: JP)
  Receive Date: 20130628
  Receipt Date: 20131202
  Transmission Date: 20140711
  Serious: Yes (Hospitalization)
  Sender: FDA-Public Use
  Company Number: JP-EISAI INC-E2007-01175-CLI-JP

PATIENT
  Age: 24 Year
  Sex: Male
  Weight: 61.4 kg

DRUGS (11)
  1. E2007 (PERAMPANEL) [Suspect]
     Indication: PARTIAL SEIZURES
     Dosage: DOUBLE BLIND CORE STUDY
     Route: 048
     Dates: start: 20120807, end: 20130116
  2. E2007 (PERAMPANEL) [Suspect]
     Dosage: CONVERSION PERIOD
     Route: 048
     Dates: start: 20130117, end: 20130227
  3. E2007 (PERAMPANEL) [Suspect]
     Route: 048
     Dates: start: 20130228, end: 20130625
  4. E2007 (PERAMPANEL) [Suspect]
     Dates: start: 20130628, end: 20130703
  5. E2007 (PERAMPANEL) [Suspect]
     Route: 048
     Dates: start: 20130704, end: 20130710
  6. E2007 (PERAMPANEL) [Suspect]
     Route: 048
     Dates: start: 20130711, end: 20130717
  7. E2007 (PERAMPANEL) [Suspect]
     Route: 048
     Dates: start: 20130718, end: 20130731
  8. EXCEGRAN [Concomitant]
     Indication: EPILEPSY
     Route: 048
     Dates: start: 20110415
  9. TOPINA [Concomitant]
     Indication: EPILEPSY
     Route: 048
     Dates: start: 20110415
  10. ALEVIATIN [Concomitant]
     Indication: EPILEPSY
     Route: 048
     Dates: start: 20120322
  11. JANUVIA [Concomitant]
     Indication: DIABETES MELLITUS
     Route: 048
     Dates: start: 20110330

REACTIONS (2)
  - Status epilepticus [Recovered/Resolved]
  - Blood phosphorus decreased [Recovered/Resolved]
